FAERS Safety Report 7035205-7 (Version None)
Quarter: 2010Q4

REPORT INFORMATION
  Report Type: 
  Country: None (occurrence: None)
  Receive Date: 20101008
  Receipt Date: 20101001
  Transmission Date: 20110411
  Serious: Yes (Other)
  Sender: FDA-Public Use
  Company Number: BR-ROCHE-730737

PATIENT
  Sex: Female
  Weight: 64 kg

DRUGS (5)
  1. TOCILIZUMAB [Suspect]
     Indication: RHEUMATOID ARTHRITIS
     Dosage: ROUTE: ENDOVENOUS; FORM: INFUSION
     Route: 042
     Dates: start: 20100723
  2. PREDNISONE [Suspect]
     Indication: PRODUCT USED FOR UNKNOWN INDICATION
     Route: 065
     Dates: end: 20100917
  3. METHOTREXATE [Concomitant]
  4. CALCIUM [Concomitant]
     Dosage: CALCITRAM B3; DAILY DOSE
  5. FOLIC ACID [Concomitant]

REACTIONS (7)
  - DECREASED APPETITE [None]
  - MUSCULOSKELETAL DISORDER [None]
  - NAUSEA [None]
  - PAIN [None]
  - PAIN IN EXTREMITY [None]
  - PARAESTHESIA [None]
  - SYNCOPE [None]
